FAERS Safety Report 5604672-5 (Version None)
Quarter: 2008Q1

REPORT INFORMATION
  Report Type: 
  Country: None (occurrence: None)
  Receive Date: 20080123
  Receipt Date: 20080114
  Transmission Date: 20080703
  Serious: Yes (Death)
  Sender: FDA-Public Use
  Company Number: B0503107A

PATIENT
  Sex: Male

DRUGS (1)
  1. PAROXETINE HCL [Suspect]

REACTIONS (1)
  - INTENTIONAL DRUG MISUSE [None]
